FAERS Safety Report 14741729 (Version 1)
Quarter: 2018Q2

REPORT INFORMATION
  Report Type: Report from Study
  Country: JP (occurrence: JP)
  Receive Date: 20180410
  Receipt Date: 20180410
  Transmission Date: 20180711
  Serious: Yes (Other)
  Sender: FDA-Public Use
  Company Number: JP-GILEAD-2017-0303201

PATIENT

DRUGS (2)
  1. FERON TORAY MEDICAL [Concomitant]
     Dosage: 3 MIU, BID
     Route: 042
  2. LEDIPASVIR/SOFOSBUVIR [Suspect]
     Active Substance: LEDIPASVIR\SOFOSBUVIR
     Indication: HEPATITIS C
     Dosage: 1 DF, QD
     Route: 065

REACTIONS (3)
  - Pancytopenia [Unknown]
  - Headache [Unknown]
  - Pyrexia [Unknown]
